FAERS Safety Report 19665562 (Version 1)
Quarter: 2021Q3

REPORT INFORMATION
  Report Type: Spontaneous
  Country: US (occurrence: US)
  Receive Date: 20210806
  Receipt Date: 20210806
  Transmission Date: 20211014
  Serious: No
  Sender: FDA-Public Use
  Company Number: US-ACCORD-220491

PATIENT
  Age: 48 Year
  Sex: Female
  Weight: 237.4 kg

DRUGS (4)
  1. DOCETAXEL ACCORD [Suspect]
     Active Substance: DOCETAXEL
     Indication: BREAST CANCER
     Dates: start: 20190110, end: 20190314
  2. CARBOPLATIN. [Suspect]
     Active Substance: CARBOPLATIN
     Indication: BREAST CANCER
     Dates: start: 20190110, end: 20190314
  3. PERJETA [Suspect]
     Active Substance: PERTUZUMAB
     Indication: BREAST CANCER
     Dates: start: 20190110, end: 20190314
  4. HERCEPTIN [Suspect]
     Active Substance: TRASTUZUMAB
     Indication: BREAST CANCER
     Dates: start: 20190110, end: 20190314

REACTIONS (6)
  - Dacryostenosis acquired [Unknown]
  - Vomiting [Unknown]
  - Mouth ulceration [Unknown]
  - Nausea [Unknown]
  - Insomnia [Unknown]
  - Oral candidiasis [Unknown]
